FAERS Safety Report 4349326-0 (Version None)
Quarter: 2004Q2

REPORT INFORMATION
  Report Type: 
  Country: None (occurrence: None)
  Receive Date: 20040426
  Receipt Date: 20040413
  Transmission Date: 20050107
  Serious: Yes (Other)
  Sender: FDA-Public Use
  Company Number: US-JNJFOC-20040302972

PATIENT
  Age: 61 Year
  Sex: Female
  Weight: 99.7913 kg

DRUGS (14)
  1. REMICADE [Suspect]
     Indication: RHEUMATOID ARTHRITIS
     Dosage: SEE IMAGE
     Route: 042
     Dates: start: 20000101
  2. REMICADE [Suspect]
     Indication: RHEUMATOID ARTHRITIS
     Dosage: SEE IMAGE
     Route: 042
     Dates: start: 20010501
  3. REMICADE [Suspect]
     Indication: RHEUMATOID ARTHRITIS
     Dosage: SEE IMAGE
     Route: 042
     Dates: start: 20011101
  4. REMICADE [Suspect]
     Indication: RHEUMATOID ARTHRITIS
     Dosage: SEE IMAGE
     Route: 042
     Dates: start: 20040107
  5. PREDNISONE [Concomitant]
  6. METHOTREXATE [Concomitant]
  7. VIOXX [Concomitant]
  8. FOSAMAX [Concomitant]
  9. FOLIC ACID [Concomitant]
  10. NEXIUM [Concomitant]
  11. LEVOXYL [Concomitant]
  12. TOPROL (METOPROLOL SUCCINATE) [Concomitant]
  13. ZOCOR [Concomitant]
  14. DITROPAN [Concomitant]

REACTIONS (2)
  - MYCOSIS FUNGOIDES [None]
  - T-CELL LYMPHOMA [None]
